FAERS Safety Report 18890323 (Version 1)
Quarter: 2021Q1

REPORT INFORMATION
  Report Type: Spontaneous
  Country: US (occurrence: US)
  Receive Date: 20210214
  Receipt Date: 20210214
  Transmission Date: 20210420
  Serious: No
  Sender: FDA-Public Use
  Company Number: US-SA-2021SA045042

PATIENT
  Age: 9 Year
  Sex: Female

DRUGS (9)
  1. CHILDREN^S MULTIVITAMIN [Concomitant]
  2. FLONASE ALLERGY RELIEF [Concomitant]
     Active Substance: FLUTICASONE PROPIONATE
     Dosage: 10MG
  3. VITAMIN C [Concomitant]
     Active Substance: ASCORBIC ACID
  4. DUPIXENT [Suspect]
     Active Substance: DUPILUMAB
     Indication: DERMATITIS ATOPIC
     Dosage: UNK UNK, QOW
     Route: 058
     Dates: start: 202011
  5. MOMETASONE FUROATE. [Concomitant]
     Active Substance: MOMETASONE FUROATE
  6. SINGULAIR [Concomitant]
     Active Substance: MONTELUKAST SODIUM
     Dosage: 10MG
  7. BORAGE OIL/LUTEIN/VITAMIN C/VITAMIN E/ZEAXANTHIN (DIETARY SUPPLEMENT) [Suspect]
     Active Substance: DIETARY SUPPLEMENT
  8. DESONIDE. [Concomitant]
     Active Substance: DESONIDE
  9. ZYRTEC?D [Concomitant]
     Active Substance: CETIRIZINE HYDROCHLORIDE\PSEUDOEPHEDRINE HYDROCHLORIDE
     Dosage: 10MG

REACTIONS (5)
  - Injection site warmth [Recovered/Resolved]
  - Injection site pruritus [Recovered/Resolved]
  - Injection site swelling [Recovered/Resolved]
  - Product use issue [Unknown]
  - Injection site erythema [Recovered/Resolved]

NARRATIVE: CASE EVENT DATE: 202011
